FAERS Safety Report 5466271-8 (Version None)
Quarter: 2007Q3

REPORT INFORMATION
  Report Type: 
  Country: None (occurrence: None)
  Receive Date: 20070924
  Receipt Date: 20070913
  Transmission Date: 20080115
  Serious: Yes (Other)
  Sender: FDA-Public Use
  Company Number: ES-PFIZER INC-2007077102

PATIENT
  Age: 31 Year
  Sex: Female

DRUGS (3)
  1. CHAMPIX [Suspect]
     Indication: SMOKING CESSATION THERAPY
     Route: 048
  2. OMEPRAZOLE [Concomitant]
     Route: 048
  3. CONTRACEPTIVE, UNSPECIFIED [Concomitant]
     Route: 048

REACTIONS (3)
  - ANXIETY [None]
  - FEAR [None]
  - PANIC ATTACK [None]
